FAERS Safety Report 22249243 (Version 4)
Quarter: 2024Q3

REPORT INFORMATION
  Report Type: Spontaneous
  Country: US (occurrence: US)
  Receive Date: 20230425
  Receipt Date: 20240713
  Transmission Date: 20241016
  Serious: No
  Sender: SANOFI AVENTIS
  Company Number: US-SA-SAC20230421001134

PATIENT
  Age: 68 Year
  Sex: Female

DRUGS (2)
  1. KEVZARA [Suspect]
     Active Substance: SARILUMAB
     Indication: Rheumatoid arthritis
     Dosage: 150 MG, QOW
     Route: 058
     Dates: start: 202301
  2. PINDOLOL [Concomitant]
     Active Substance: PINDOLOL

REACTIONS (5)
  - Pain [Unknown]
  - Infection [Unknown]
  - Incorrect dose administered [Unknown]
  - Product dose omission in error [Unknown]
  - Cardiac operation [Unknown]

NARRATIVE: CASE EVENT DATE: 20230101
